FAERS Safety Report 10725863 (Version 2)
Quarter: 2015Q1

REPORT INFORMATION
  Report Type: Spontaneous
  Country: US (occurrence: None)
  Receive Date: 20150116
  Receipt Date: 20150126
  Transmission Date: 20150721
  Serious: Yes (Other)
  Sender: FDA-Public Use
  Company Number: ADR-2015-00072

PATIENT
  Age: 67 Year
  Sex: Female

DRUGS (3)
  1. BACLOFEN INTRATHECAL 256.4 MCG/ML [Suspect]
     Active Substance: BACLOFEN
     Indication: SPINAL LAMINECTOMY
  2. FENTANYL INTRATHECAL 12000 MCG/ML [Suspect]
     Active Substance: FENTANYL
     Indication: POST LAMINECTOMY SYNDROME
  3. BUPIVACAINE INTRATHECAL [Suspect]
     Active Substance: BUPIVACAINE
     Dosage: 2.5MG/ML, DOSE 0.8107 MG/DAY

REACTIONS (5)
  - Compression fracture [None]
  - Sleep apnoea syndrome [None]
  - Pain [None]
  - Drug screen negative [None]
  - Hypertension [None]

NARRATIVE: CASE EVENT DATE: 20150107
